FAERS Safety Report 19721895 (Version 1)
Quarter: 2021Q3

REPORT INFORMATION
  Report Type: Spontaneous
  Country: IN (occurrence: IN)
  Receive Date: 20210819
  Receipt Date: 20210819
  Transmission Date: 20211014
  Serious: Yes (Other)
  Sender: FDA-Public Use
  Company Number: IN-SUN PHARMACEUTICAL INDUSTRIES LTD-2021R1-308548

PATIENT
  Age: 39 Year
  Sex: Male

DRUGS (2)
  1. DEXAMETHASONE. [Suspect]
     Active Substance: DEXAMETHASONE
     Indication: COVID-19
     Dosage: 60 MG , UNK
     Route: 048
  2. FAVIPIRAVIR [Concomitant]
     Active Substance: FAVIPIRAVIR
     Indication: COVID-19
     Dosage: 200 MG , UNK
     Route: 048

REACTIONS (1)
  - Osteonecrosis [Unknown]
